FAERS Safety Report 16822000 (Version 1)
Quarter: 2019Q3

REPORT INFORMATION
  Report Type: Spontaneous
  Country: IN (occurrence: IN)
  Receive Date: 20190918
  Receipt Date: 20190918
  Transmission Date: 20191005
  Serious: Yes (Other)
  Sender: FDA-Public Use
  Company Number: IN-FRESENIUS KABI-FK201910198

PATIENT
  Age: 31 Year
  Sex: Female

DRUGS (2)
  1. FENTANYL (MANUFACTURER UNKNOWN) [Suspect]
     Active Substance: FENTANYL
     Indication: SPINAL ANAESTHESIA
     Dosage: 10 MICROGRAM?AT L3-L4 INTERVERTEBRAL SPACE
     Route: 037
  2. BUPIVACAINE. [Suspect]
     Active Substance: BUPIVACAINE
     Indication: SPINAL ANAESTHESIA
     Dosage: AT L3-L4 INTERVERTEBRAL SPACE
     Route: 037

REACTIONS (1)
  - Condition aggravated [Recovering/Resolving]
